FAERS Safety Report 6520397-6 (Version None)
Quarter: 2009Q4

REPORT INFORMATION
  Report Type: 
  Country: None (occurrence: None)
  Receive Date: 20091229
  Receipt Date: 20091214
  Transmission Date: 20100525
  Serious: Yes (Hospitalization)
  Sender: FDA-Public Use
  Company Number: FR-PFIZER INC-2009314275

PATIENT
  Sex: Female

DRUGS (3)
  1. ATARAX [Suspect]
     Dosage: 1500 MG, SINGLE
     Route: 048
     Dates: start: 20090924, end: 20090924
  2. PARACETAMOL [Suspect]
     Dosage: 24 G, SINGLE
     Route: 048
     Dates: start: 20090924, end: 20090924
  3. STILNOX [Suspect]
     Dosage: 90 MG, SINGLE
     Route: 048
     Dates: start: 20090924, end: 20090924

REACTIONS (6)
  - ANAPHYLACTOID REACTION [None]
  - CYTOLYTIC HEPATITIS [None]
  - DRUG TOXICITY [None]
  - SOMNOLENCE [None]
  - TACHYCARDIA [None]
  - VERTIGO [None]
